FAERS Safety Report 5088394-8 (Version None)
Quarter: 2006Q3

REPORT INFORMATION
  Report Type: 
  Country: None (occurrence: None)
  Receive Date: 20060821
  Receipt Date: 20060804
  Transmission Date: 20061208
  Serious: Yes (Hospitalization)
  Sender: FDA-Public Use
  Company Number: 8018352

PATIENT
  Age: 23 Year
  Sex: Female

DRUGS (10)
  1. METHYLPHENIDATE HCL [Suspect]
     Dosage: 10 MG TWICE PO
     Route: 048
  2. VENLAFAXINE HCL EXTENDED-RELEASE [Suspect]
     Dosage: 75 MG /D PO
     Route: 048
  3. VENLAFAXINE HCL EXTENDED-RELEASE [Suspect]
     Dosage: 150 MG /D PO
     Route: 048
  4. VENLAFAXINE HCL EXTENDED-RELEASE [Suspect]
     Dosage: 225 MG /D PO
     Route: 048
  5. ESCITALOPRAM [Suspect]
     Dosage: 10 MG /D PO
     Route: 048
  6. LITHIUM [Concomitant]
  7. LAMOTRIGINE [Concomitant]
  8. TRAZODONE HCL [Concomitant]
  9. MIRTAZAPINE [Concomitant]
  10. GABAPENTIN [Concomitant]

REACTIONS (15)
  - ASTHENIA [None]
  - BLOOD PRESSURE INCREASED [None]
  - CHEST PAIN [None]
  - DIZZINESS [None]
  - DRUG INTOLERANCE [None]
  - FLUSHING [None]
  - HALLUCINATION [None]
  - HEADACHE [None]
  - HYPERVENTILATION [None]
  - LETHARGY [None]
  - MOVEMENT DISORDER [None]
  - PAIN [None]
  - PALLOR [None]
  - PHARYNGEAL ERYTHEMA [None]
  - SEROTONIN SYNDROME [None]
